FAERS Safety Report 9496967 (Version 1)
Quarter: 2013Q3

REPORT INFORMATION
  Report Type: Spontaneous
  Country: US (occurrence: None)
  Receive Date: 20130903
  Receipt Date: 20130903
  Transmission Date: 20140515
  Serious: No
  Sender: FDA-Public Use
  Company Number: None

PATIENT
  Age: 38 Year
  Sex: Male
  Weight: 111.59 kg

DRUGS (1)
  1. CYMBALTA [Suspect]
     Indication: FIBROMYALGIA
     Route: 048
     Dates: start: 20130830, end: 20130831

REACTIONS (8)
  - Influenza like illness [None]
  - Musculoskeletal stiffness [None]
  - Headache [None]
  - Drug ineffective [None]
  - Confusional state [None]
  - Dizziness [None]
  - Dry mouth [None]
  - Hyperhidrosis [None]
